FAERS Safety Report 18707153 (Version 4)
Quarter: 2021Q1

REPORT INFORMATION
  Report Type: Report from Study
  Country: CA (occurrence: CA)
  Receive Date: 20210106
  Receipt Date: 20210218
  Transmission Date: 20210419
  Serious: Yes (Hospitalization)
  Sender: FDA-Public Use
  Company Number: CA-OTSUKA-2020_032841

PATIENT
  Age: 26 Year
  Sex: Male

DRUGS (3)
  1. ARIPIPRAZOLE. [Suspect]
     Active Substance: ARIPIPRAZOLE
     Indication: SCHIZOPHRENIA
     Dosage: 400 MG, Q4 WEEKS
     Route: 030
     Dates: start: 202003
  2. ARIPIPRAZOLE. [Suspect]
     Active Substance: ARIPIPRAZOLE
     Dosage: 400 MG, Q 21 DAYS (EVERY 3 WEEKS)
     Route: 030
  3. ABILIFY [Suspect]
     Active Substance: ARIPIPRAZOLE
     Indication: PRODUCT USED FOR UNKNOWN INDICATION
     Dosage: UNK
     Route: 048

REACTIONS (5)
  - Abnormal behaviour [Recovering/Resolving]
  - Inappropriate schedule of product administration [Unknown]
  - Schizophrenia [Recovering/Resolving]
  - Refusal of treatment by patient [Unknown]
  - Inappropriate schedule of product administration [Unknown]

NARRATIVE: CASE EVENT DATE: 20210202
